FAERS Safety Report 6636287-4 (Version None)
Quarter: 2010Q1

REPORT INFORMATION
  Report Type: 
  Country: None (occurrence: None)
  Receive Date: 20100316
  Receipt Date: 20100308
  Transmission Date: 20100710
  Serious: Yes (Other)
  Sender: FDA-Public Use
  Company Number: FR-ASTRAZENECA-2010SE10407

PATIENT
  Age: 25726 Day
  Sex: Female

DRUGS (5)
  1. NEXIUM [Suspect]
     Route: 042
     Dates: start: 20100217, end: 20100221
  2. KETOPROFEN [Suspect]
     Route: 042
     Dates: start: 20100217, end: 20100221
  3. PERFALGAN [Suspect]
     Dosage: 10 MG/ML
     Route: 042
     Dates: start: 20100217, end: 20100221
  4. TRAMADOL HCL [Suspect]
     Dosage: 100 MG/ 2ML
     Route: 042
     Dates: start: 20100217, end: 20100221
  5. NON-FRACTIONATED HEPARIN [Concomitant]

REACTIONS (2)
  - CYTOLYTIC HEPATITIS [None]
  - PLATELET COUNT DECREASED [None]
